FAERS Safety Report 5801022-6 (Version None)
Quarter: 2008Q3

REPORT INFORMATION
  Report Type: 
  Country: None (occurrence: None)
  Receive Date: 20080704
  Receipt Date: 20080701
  Transmission Date: 20090109
  Serious: Yes (Other)
  Sender: FDA-Public Use
  Company Number: US-BAYER-200819054NA

PATIENT
  Age: 24 Year
  Sex: Female
  Weight: 62 kg

DRUGS (1)
  1. YAZ [Suspect]
     Indication: CONTRACEPTION
     Route: 048
     Dates: start: 20080117, end: 20080213

REACTIONS (1)
  - BLOOD POTASSIUM INCREASED [None]
